FAERS Safety Report 4898499-X (Version None)
Quarter: 2006Q1

REPORT INFORMATION
  Report Type: 
  Country: None (occurrence: None)
  Receive Date: 20060202
  Receipt Date: 20051215
  Transmission Date: 20060701
  Serious: Yes (Other)
  Sender: FDA-Public Use
  Company Number: PHNU2005DE04199

PATIENT
  Age: 44 Year
  Sex: Female
  Weight: 72 kg

DRUGS (4)
  1. LOCOL [Suspect]
     Indication: HYPERCHOLESTEROLAEMIA
     Dosage: 80 MG, QD
     Route: 048
     Dates: start: 20050729, end: 20050903
  2. CLOPIDOGREL [Concomitant]
  3. PRAVASIN [Suspect]
     Indication: HYPERCHOLESTEROLAEMIA
     Dosage: 20 MG, QD
     Route: 048
     Dates: start: 20050601, end: 20050728
  4. ASPIRIN [Concomitant]
     Dosage: 100 MG, QD
     Route: 048
     Dates: start: 20050502

REACTIONS (2)
  - PARAESTHESIA [None]
  - POLYNEUROPATHY [None]
